FAERS Safety Report 4364479-6 (Version None)
Quarter: 2004Q2

REPORT INFORMATION
  Report Type: 
  Country: None (occurrence: None)
  Receive Date: 20040525
  Receipt Date: 20040520
  Transmission Date: 20050107
  Serious: Yes (Other)
  Sender: FDA-Public Use
  Company Number: GB-GLAXOSMITHKLINE-B0333452A

PATIENT
  Age: 72 Year
  Sex: Female
  Weight: 60 kg

DRUGS (7)
  1. AVANDIA [Suspect]
     Indication: DIABETES MELLITUS
     Route: 048
     Dates: start: 20040329, end: 20040423
  2. ASPIRIN [Concomitant]
     Dosage: 75MG PER DAY
     Route: 048
     Dates: start: 19970101
  3. FUROSEMIDE [Concomitant]
     Indication: OEDEMA PERIPHERAL
     Route: 065
     Dates: start: 20040329
  4. GLICLAZIDE [Concomitant]
     Dosage: 80MG TWICE PER DAY
     Route: 065
  5. METFORMIN HCL [Concomitant]
     Dosage: 1G TWICE PER DAY
     Route: 065
     Dates: start: 20020901
  6. CANDESARTAN [Concomitant]
     Indication: HYPERTENSION
     Dosage: 16MG PER DAY
     Route: 048
     Dates: start: 20000801
  7. SIMVASTATIN [Concomitant]
     Route: 065
     Dates: start: 20040329

REACTIONS (3)
  - CONTUSION [None]
  - OEDEMA [None]
  - PURPURA [None]
